FAERS Safety Report 8412847-5 (Version None)
Quarter: 2012Q2

REPORT INFORMATION
  Report Type: 
  Country: None (occurrence: None)
  Receive Date: 20120605
  Receipt Date: 20120524
  Transmission Date: 20120825
  Serious: No
  Sender: FDA-Public Use
  Company Number: US-AMGEN-USASP2012032807

PATIENT
  Age: 59 Year
  Sex: Male

DRUGS (1)
  1. ENBREL [Suspect]
     Indication: ANKYLOSING SPONDYLITIS
     Dosage: 50 MG, QWK
     Dates: start: 20090901, end: 20120430

REACTIONS (5)
  - COUGH [None]
  - PERICARDIAL EFFUSION [None]
  - MUSCULOSKELETAL STIFFNESS [None]
  - ELECTROCARDIOGRAM ABNORMAL [None]
  - JOINT STIFFNESS [None]
